FAERS Safety Report 23618105 (Version 1)
Quarter: 2024Q1

REPORT INFORMATION
  Report Type: Spontaneous
  Country: GB (occurrence: GB)
  Receive Date: 20240311
  Receipt Date: 20240311
  Transmission Date: 20240409
  Serious: Yes (Hospitalization, Other)
  Sender: FDA-Public Use
  Company Number: GB-ADVANZ PHARMA-202311011135

PATIENT
  Sex: Male

DRUGS (1)
  1. LANREOTIDE ACETATE [Suspect]
     Active Substance: LANREOTIDE ACETATE
     Indication: Acromegaly
     Route: 058
     Dates: start: 20231004

REACTIONS (7)
  - Infection [Unknown]
  - Metastases to liver [Unknown]
  - Oesophageal carcinoma [Not Recovered/Not Resolved]
  - Therapy interrupted [Unknown]
  - Spinal disorder [Recovering/Resolving]
  - Pain in extremity [Recovering/Resolving]
  - Sensory disturbance [Recovering/Resolving]

NARRATIVE: CASE EVENT DATE: 20240124
